FAERS Safety Report 6894563-4 (Version None)
Quarter: 2010Q3

REPORT INFORMATION
  Report Type: 
  Country: None (occurrence: None)
  Receive Date: 20100727
  Receipt Date: 20100715
  Transmission Date: 20110219
  Serious: Yes (Hospitalization)
  Sender: FDA-Public Use
  Company Number: 2010JP004102

PATIENT
  Age: 84 Year
  Sex: Female

DRUGS (10)
  1. VESICARE [Suspect]
     Dosage: 10 MG, D, ORAL
     Route: 048
  2. SEROQUEL [Suspect]
     Dosage: ORAL
     Route: 048
  3. GOSHAJINKIGAN (HERBAL EXTRACT NOS) [Concomitant]
  4. YOKUKAN-SAN (HERBAL EXTRACT NOS) [Concomitant]
  5. LENDORM [Concomitant]
  6. DESYREL [Concomitant]
  7. PROTECADIN (LAFUTIDINE) [Concomitant]
  8. ALOSENN (ACHILLEA MILLEFOLIUM, RUBIA TINCTORUM ROOT TINCTURE, SENNA AL [Concomitant]
  9. VITAMEDIN (BENFOTIAMINE) [Concomitant]
  10. RIZE (CLOTIAZEPAM) [Concomitant]

REACTIONS (2)
  - CONDITION AGGRAVATED [None]
  - DEMENTIA [None]
